FAERS Safety Report 24812161 (Version 1)
Quarter: 2025Q1

REPORT INFORMATION
  Report Type: Spontaneous
  Country: US (occurrence: None)
  Receive Date: 20250106
  Receipt Date: 20250106
  Transmission Date: 20250409
  Serious: Yes (Other)
  Sender: FDA-CTU
  Company Number: None

PATIENT
  Age: 81 Year
  Sex: Female

DRUGS (9)
  1. NUCALA [Suspect]
     Active Substance: MEPOLIZUMAB
     Indication: Asthma
     Dosage: 100 MG/ML EVERY 4 WEEKS SUBCUTANEOUS
     Route: 058
     Dates: end: 20250106
  2. NUCALA [Suspect]
     Active Substance: MEPOLIZUMAB
     Indication: Asthma
  3. LANTUS SOLOSTAR [Concomitant]
     Active Substance: INSULIN GLARGINE
  4. LANSOPRAZOLE [Concomitant]
     Active Substance: LANSOPRAZOLE
  5. Freestyle Lite Blood Glucose Strips [Concomitant]
  6. Levothyroxine 0.100 mg [Concomitant]
  7. CELECOXIB [Concomitant]
     Active Substance: CELECOXIB
  8. METFORMIN [Concomitant]
     Active Substance: METFORMIN HYDROCHLORIDE
  9. Ferrous Sulfate 325 mg [Concomitant]

REACTIONS (4)
  - Rash [None]
  - Headache [None]
  - Back pain [None]
  - Urticaria [None]

NARRATIVE: CASE EVENT DATE: 20240121
